FAERS Safety Report 5285747-X (Version None)
Quarter: 2007Q1

REPORT INFORMATION
  Report Type: 
  Country: None (occurrence: None)
  Receive Date: 20070126
  Receipt Date: 20061215
  Transmission Date: 20070707
  Serious: No
  Sender: FDA-Public Use
  Company Number: 2006CT001183

PATIENT
  Age: 34 Year
  Sex: Male
  Weight: 71.6683 kg

DRUGS (4)
  1. VENTAVIS [Suspect]
     Indication: PULMONARY HYPERTENSION
     Dosage: SEE IMAGE
     Route: 055
     Dates: start: 20061208, end: 20061201
  2. VENTAVIS [Suspect]
     Indication: PULMONARY HYPERTENSION
     Dosage: SEE IMAGE
     Route: 055
     Dates: start: 20061003, end: 20061208
  3. WARFARIN SODIUM [Concomitant]
  4. DIGOXIN [Concomitant]

REACTIONS (4)
  - COUGH [None]
  - FLUID RETENTION [None]
  - HEADACHE [None]
  - LUNG DISORDER [None]
